FAERS Safety Report 4845686-2 (Version None)
Quarter: 2005Q4

REPORT INFORMATION
  Report Type: 
  Country: None (occurrence: None)
  Receive Date: 20051206
  Receipt Date: 20050906
  Transmission Date: 20060501
  Serious: Yes (Hospitalization)
  Sender: FDA-Public Use
  Company Number: US-SOLVAY-00205002823

PATIENT
  Sex: Male
  Weight: 93 kg

DRUGS (4)
  1. ANDROGEL [Suspect]
     Indication: BLOOD TESTOSTERONE DECREASED
     Dosage: DAILY DOSE: 5 GRAM(S)
     Route: 062
     Dates: start: 20000101, end: 20050301
  2. ANDROGEL [Suspect]
     Dosage: DAILY DOSE: 5 GRAM(S)
     Route: 062
     Dates: start: 20050801, end: 20050101
  3. FLOMAX [Concomitant]
     Indication: PROSTATE EXAMINATION ABNORMAL
     Dosage: DAILY DOSE: .8 MILLIGRAM(S)
     Route: 048
  4. SYNTHROID [Concomitant]
     Indication: THYROXINE THERAPY
     Dosage: DAILY DOSE: 25 MILLIEQUIVALENT(S)
     Route: 048
     Dates: start: 20050101

REACTIONS (1)
  - CORONARY ARTERY OCCLUSION [None]
